FAERS Safety Report 8599473 (Version 3)
Quarter: 2016Q4

REPORT INFORMATION
  Report Type: Spontaneous
  Country: GB (occurrence: GB)
  Receive Date: 20120605
  Receipt Date: 20161209
  Transmission Date: 20170207
  Serious: Yes (Death, Hospitalization, Other)
  Sender: FDA-Public Use
  Company Number: GB-B.I. PHARMACEUTICALS,INC./RIDGEFIELD-2012-UK-00345UK

PATIENT
  Age: 41 Year
  Sex: Male
  Weight: 62.5 kg

DRUGS (3)
  1. VIRAMUNE [Suspect]
     Active Substance: NEVIRAPINE
     Indication: CD4 LYMPHOCYTES DECREASED
     Route: 048
     Dates: start: 20060915, end: 20120209
  2. FLUPHENAZINE [Suspect]
     Active Substance: FLUPHENAZINE
     Indication: SCHIZOPHRENIA
     Route: 065
  3. KIVEXA [Suspect]
     Active Substance: ABACAVIR SULFATE\LAMIVUDINE
     Indication: HIV INFECTION
     Route: 065

REACTIONS (16)
  - Rash generalised [Unknown]
  - Diarrhoea [Unknown]
  - Stevens-Johnson syndrome [Not Recovered/Not Resolved]
  - Tachycardia [Unknown]
  - Paraneoplastic pemphigus [Fatal]
  - Sepsis [Fatal]
  - Swelling face [Unknown]
  - Mouth ulceration [Unknown]
  - Plantar fasciitis [Unknown]
  - Abdominal distension [Unknown]
  - Vomiting [Unknown]
  - Drug eruption [Unknown]
  - Toxic epidermal necrolysis [Unknown]
  - B-cell lymphoma [Fatal]
  - Treponema test positive [Unknown]
  - Pyrexia [Unknown]

NARRATIVE: CASE EVENT DATE: 201105
